FAERS Safety Report 26199663 (Version 1)
Quarter: 2025Q4

REPORT INFORMATION
  Report Type: Spontaneous
  Country: EU (occurrence: EU)
  Receive Date: 20251225
  Receipt Date: 20251225
  Transmission Date: 20260119
  Serious: Yes (Death, Other)
  Sender: TEVA
  Company Number: EU-TEVA-VS-3405680

PATIENT
  Age: 30 Year
  Sex: Male

DRUGS (2)
  1. CYCLOSPORINE [Suspect]
     Active Substance: CYCLOSPORINE
     Indication: Product used for unknown indication
     Route: 065
  2. AMPHOTERICIN B [Suspect]
     Active Substance: AMPHOTERICIN B
     Indication: Mucormycosis
     Dosage: LIPID COMPLEX
     Route: 065

REACTIONS (3)
  - Hyperkalaemia [Fatal]
  - Ventricular fibrillation [Fatal]
  - Renal impairment [Unknown]
